FAERS Safety Report 19443226 (Version 1)
Quarter: 2021Q2

REPORT INFORMATION
  Report Type: Spontaneous
  Country: FR (occurrence: FR)
  Receive Date: 20210621
  Receipt Date: 20210621
  Transmission Date: 20210717
  Serious: Yes (Congenital Anomaly)
  Sender: FDA-Public Use
  Company Number: NVSC2021FR136172

PATIENT
  Age: 16 Year
  Sex: Female

DRUGS (2)
  1. HYDROXYZINE [Suspect]
     Active Substance: HYDROXYZINE HYDROCHLORIDE
     Indication: INSOMNIA
     Dosage: 1 DF
     Route: 064
     Dates: start: 202006
  2. ZOPICLONE [Suspect]
     Active Substance: ZOPICLONE
     Indication: INSOMNIA
     Dosage: 1 DF
     Route: 064
     Dates: start: 202006

REACTIONS (2)
  - Brain malformation [Not Recovered/Not Resolved]
  - Polymicrogyria [Not Recovered/Not Resolved]
